FAERS Safety Report 7369730-6 (Version None)
Quarter: 2011Q1

REPORT INFORMATION
  Report Type: 
  Country: None (occurrence: None)
  Receive Date: 20110317
  Receipt Date: 20110317
  Transmission Date: 20110831
  Serious: No
  Sender: FDA-Public Use
  Company Number: None

PATIENT
  Age: 69 Year
  Sex: Female
  Weight: 65.7716 kg

DRUGS (3)
  1. PREDNISONE [Suspect]
     Indication: URTICARIA
     Dosage: 10 MG 4XDAY
  2. PREDNISONE [Suspect]
     Indication: RASH
     Dosage: 10 MG 4XDAY
  3. ANCEF [Suspect]
     Indication: SWELLING
     Dosage: 10MG 3XDAY, 10MG 2XDAY

REACTIONS (7)
  - FACIAL PAIN [None]
  - SWELLING FACE [None]
  - URTICARIA [None]
  - RASH [None]
  - PAIN [None]
  - HEADACHE [None]
  - SKIN DISORDER [None]
